FAERS Safety Report 6655256-1 (Version None)
Quarter: 2010Q1

REPORT INFORMATION
  Report Type: 
  Country: None (occurrence: None)
  Receive Date: 20100329
  Receipt Date: 20100323
  Transmission Date: 20100710
  Serious: Yes (Death, Hospitalization)
  Sender: FDA-Public Use
  Company Number: -SANOFI-AVENTIS-200911619JP

PATIENT
  Age: 72 Year
  Sex: Female
  Weight: 38 kg

DRUGS (10)
  1. LEFLUNOMIDE [Suspect]
     Indication: RHEUMATOID ARTHRITIS
     Route: 048
     Dates: start: 20070628, end: 20080218
  2. LEFLUNOMIDE [Suspect]
     Route: 048
     Dates: start: 20080807, end: 20081223
  3. INFLIXIMAB [Suspect]
     Indication: RHEUMATOID ARTHRITIS
     Dosage: 200 MG EVERY TWO MONTHS
     Route: 042
     Dates: start: 20070416, end: 20080206
  4. PREDNISOLONE [Concomitant]
     Route: 048
     Dates: start: 20060319, end: 20080218
  5. FAMOTIDINE [Concomitant]
     Route: 048
     Dates: start: 20051221, end: 20080218
  6. ASPIRIN [Concomitant]
     Route: 048
     Dates: start: 20021227, end: 20080218
  7. ISCOTIN [Concomitant]
     Route: 048
     Dates: start: 20051020, end: 20080218
  8. PYDOXAL [Concomitant]
     Route: 048
     Dates: start: 20051020, end: 20080218
  9. GASMOTIN [Concomitant]
     Dosage: DOSE AS USED: 5 MG, 3 TABLETS
     Route: 048
     Dates: start: 20070531, end: 20080218
  10. CLARITH [Concomitant]
     Route: 048
     Dates: start: 20070710, end: 20080218

REACTIONS (2)
  - CARDIAC FAILURE [None]
  - CYTOMEGALOVIRUS GASTROENTERITIS [None]
